FAERS Safety Report 6252705-8 (Version None)
Quarter: 2009Q3

REPORT INFORMATION
  Report Type: 
  Country: None (occurrence: None)
  Receive Date: 20090701
  Receipt Date: 20090626
  Transmission Date: 20100115
  Serious: Yes (Death)
  Sender: FDA-Public Use
  Company Number: JP-ASTRAZENECA-2009SE03570

PATIENT
  Age: 85 Year
  Sex: Female

DRUGS (2)
  1. XYLOCAINE [Suspect]
     Indication: LOCAL ANAESTHESIA
     Dosage: DOSE UNKNOWN (A SMALL AMOUNT)
     Route: 048
     Dates: start: 20090523, end: 20090523
  2. XYLOCAINE [Suspect]
     Indication: LOCAL ANAESTHESIA
     Dosage: DOSE UNKNOWN (A SMALL AMOUNT)
     Route: 048
     Dates: start: 20090523, end: 20090523

REACTIONS (1)
  - SHOCK [None]
